FAERS Safety Report 4719976-8 (Version None)
Quarter: 2005Q3

REPORT INFORMATION
  Report Type: 
  Country: None (occurrence: None)
  Receive Date: 20050721
  Receipt Date: 20050712
  Transmission Date: 20060218
  Serious: Yes (Hospitalization)
  Sender: FDA-Public Use
  Company Number: 2005CG01253

PATIENT
  Age: 78 Year
  Sex: Female

DRUGS (2)
  1. HYTACAND [Suspect]
     Indication: HYPERTENSION
     Dosage: 16 + 12.5 MG QD
     Route: 048
     Dates: start: 20050528, end: 20050606
  2. LIPANTHYL [Concomitant]
     Route: 048

REACTIONS (3)
  - CONFUSIONAL STATE [None]
  - MALAISE [None]
  - SPEECH DISORDER [None]
